FAERS Safety Report 12055337 (Version 2)
Quarter: 2016Q1

REPORT INFORMATION
  Report Type: Spontaneous
  Country: ES (occurrence: ES)
  Receive Date: 20160209
  Receipt Date: 20160306
  Transmission Date: 20160526
  Serious: Yes (Hospitalization)
  Sender: FDA-Public Use
  Company Number: ES-AUROBINDO-AUR-APL-2016-01015

PATIENT
  Age: 74 Year
  Sex: Female

DRUGS (2)
  1. ALPRAZOLAM. [Suspect]
     Active Substance: ALPRAZOLAM
     Indication: DISORIENTATION
  2. ALPRAZOLAM. [Suspect]
     Active Substance: ALPRAZOLAM
     Indication: EUPHORIC MOOD
     Route: 065

REACTIONS (5)
  - Somnolence [Recovered/Resolved]
  - Erythema [Recovered/Resolved]
  - Stupor [Recovered/Resolved]
  - Condition aggravated [Recovered/Resolved]
  - Toxicity to various agents [Recovered/Resolved]
